FAERS Safety Report 4427828-6 (Version None)
Quarter: 2004Q3

REPORT INFORMATION
  Report Type: 
  Country: None (occurrence: None)
  Receive Date: 20040813
  Receipt Date: 20040802
  Transmission Date: 20050211
  Serious: Yes (Other)
  Sender: FDA-Public Use
  Company Number: EEME00204002589

PATIENT
  Age: 63 Year
  Sex: Female

DRUGS (2)
  1. ESTRATEST [Suspect]
     Indication: HORMONE REPLACEMENT THERAPY
     Dosage: DAILY PO
     Route: 048
     Dates: start: 19980701, end: 19981101
  2. PREMARIN [Suspect]
     Indication: HORMONE REPLACEMENT THERAPY
     Dosage: DAILY PO
     Route: 048
     Dates: start: 19880901, end: 20010801

REACTIONS (1)
  - OVARIAN CANCER [None]
